FAERS Safety Report 12857278 (Version 3)
Quarter: 2016Q4

REPORT INFORMATION
  Report Type: Spontaneous
  Country: KR (occurrence: KR)
  Receive Date: 20161018
  Receipt Date: 20161121
  Transmission Date: 20170207
  Serious: Yes (Hospitalization)
  Sender: FDA-Public Use
  Company Number: KR-PURDUE PHARMA-GBR-2016-0040907

PATIENT
  Age: 78 Year
  Sex: Female

DRUGS (2)
  1. NORSPAN [Suspect]
     Active Substance: BUPRENORPHINE
     Indication: ROTATOR CUFF SYNDROME
     Dosage: 10 MCG, Q1H
     Route: 062
     Dates: start: 20160808, end: 20160817
  2. ANTIHYPERTENSIVES [Concomitant]
     Active Substance: UNSPECIFIED INGREDIENT

REACTIONS (7)
  - Motion sickness [Recovering/Resolving]
  - Drug administered at inappropriate site [Unknown]
  - Dyspnoea [Recovering/Resolving]
  - Listless [Recovering/Resolving]
  - Palpitations [Recovering/Resolving]
  - Blood pressure increased [Recovering/Resolving]
  - Weight decreased [Recovering/Resolving]

NARRATIVE: CASE EVENT DATE: 20160811
